FAERS Safety Report 5936437-9 (Version None)
Quarter: 2008Q4

REPORT INFORMATION
  Report Type: 
  Country: None (occurrence: None)
  Receive Date: 20081030
  Receipt Date: 20081024
  Transmission Date: 20090506
  Serious: Yes (Other)
  Sender: FDA-Public Use
  Company Number: JP-BAYER-JP-2007-034172

PATIENT
  Age: 52 Year
  Sex: Female
  Weight: 35 kg

DRUGS (23)
  1. MAGNEVIST [Suspect]
     Indication: NUCLEAR MAGNETIC RESONANCE IMAGING
     Dosage: TOTAL DAILY DOSE: 7 ML
     Route: 042
     Dates: start: 20030514, end: 20030514
  2. MAGNEVIST [Suspect]
     Dosage: TOTAL DAILY DOSE: 7 ML
     Route: 042
     Dates: start: 20030708, end: 20030708
  3. MAGNEVIST [Suspect]
     Dosage: TOTAL DAILY DOSE: 7 ML
     Route: 042
     Dates: start: 20041110, end: 20041110
  4. MAGNEVIST [Suspect]
     Dosage: TOTAL DAILY DOSE: 7 ML
     Route: 042
     Dates: start: 20040317, end: 20040317
  5. MAGNEVIST [Suspect]
     Dosage: TOTAL DAILY DOSE: 7 ML
     Route: 042
     Dates: start: 20040707, end: 20040707
  6. MAGNEVIST [Suspect]
     Indication: ANGIOGRAM
     Dosage: TOTAL DAILY DOSE: 15 ML
     Route: 042
     Dates: start: 20050525, end: 20050525
  7. MAGNEVIST [Suspect]
     Dosage: TOTAL DAILY DOSE: 15 ML
     Route: 042
     Dates: start: 20050830, end: 20050830
  8. MAGNEVIST [Suspect]
     Dosage: TOTAL DAILY DOSE: 15 ML
     Route: 042
     Dates: start: 20041229, end: 20041229
  9. OMNISCAN [Suspect]
     Indication: NUCLEAR MAGNETIC RESONANCE IMAGING
     Dosage: TOTAL DAILY DOSE: 7 ML
     Route: 042
     Dates: start: 20050316, end: 20050316
  10. OMNISCAN [Suspect]
     Dosage: TOTAL DAILY DOSE: 7 ML
     Route: 042
     Dates: start: 20051221, end: 20051221
  11. OMNISCAN [Suspect]
     Dosage: TOTAL DAILY DOSE: 7 ML
     Route: 042
     Dates: start: 20050909, end: 20050909
  12. OMNISCAN [Suspect]
     Dosage: TOTAL DAILY DOSE: 7 ML
     Route: 042
     Dates: start: 20030924, end: 20030924
  13. OMNISCAN [Suspect]
     Dosage: TOTAL DAILY DOSE: 7 ML
     Route: 042
     Dates: start: 20031126, end: 20031126
  14. OMNISCAN [Suspect]
     Dosage: TOTAL DAILY DOSE: 7 ML
     Route: 042
     Dates: start: 20050803, end: 20050803
  15. LANSOPRAZOLE [Concomitant]
     Indication: PEPTIC ULCER
     Dosage: TOTAL DAILY DOSE: 15 MG
     Route: 048
     Dates: start: 20010101
  16. PREDONINE [Concomitant]
     Indication: SYSTEMIC LUPUS ERYTHEMATOSUS
     Dosage: TOTAL DAILY DOSE: 7.5 MG
     Route: 048
     Dates: start: 19940101
  17. LEVOTHYROXINE SODIUM [Concomitant]
     Indication: HYPOTHYROIDISM
     Dosage: TOTAL DAILY DOSE: 25 ?G
     Route: 048
     Dates: start: 20030101
  18. NU-LOTAN [Concomitant]
     Dosage: TOTAL DAILY DOSE: 25 MG
     Route: 048
     Dates: start: 20040101
  19. LIDOCAINE [Concomitant]
     Route: 061
     Dates: start: 20020101
  20. RENAGEL [Concomitant]
     Dosage: TOTAL DAILY DOSE: 4.5 G
     Route: 048
     Dates: start: 20040101
  21. DIASTASE [Concomitant]
     Dosage: TOTAL DAILY DOSE: 3 DF
     Route: 048
     Dates: start: 20040101
  22. PURSENNIDE [Concomitant]
     Indication: CONSTIPATION
     Dosage: TOTAL DAILY DOSE: 36 MG
     Route: 048
     Dates: start: 19970101
  23. HEPARIN CALCIUM [Concomitant]
     Dosage: TOTAL DAILY DOSE: 10000 IU
     Route: 065
     Dates: start: 20050513, end: 20050518

REACTIONS (1)
  - NEPHROGENIC SYSTEMIC FIBROSIS [None]
